FAERS Safety Report 9383461 (Version 1)
Quarter: 2013Q3

REPORT INFORMATION
  Report Type: Spontaneous
  Country: CA (occurrence: CA)
  Receive Date: 20130704
  Receipt Date: 20130704
  Transmission Date: 20140515
  Serious: Yes (Hospitalization, Other)
  Sender: FDA-Public Use
  Company Number: CA-PFIZER INC-2013194173

PATIENT
  Age: 57 Year
  Sex: Male

DRUGS (17)
  1. DILANTIN [Suspect]
  2. AVASTIN [Suspect]
     Indication: GLIOBLASTOMA
     Dosage: 1000 MG, EVERY 2 WEEKS
     Route: 042
     Dates: start: 20120703, end: 20121221
  3. DEXAMETHASONE [Concomitant]
     Dosage: UNK
  4. RABEPRAZOLE [Concomitant]
     Dosage: UNK
  5. ASA [Concomitant]
     Dosage: UNK
  6. PLAVIX [Concomitant]
     Dosage: UNK
  7. FUROSEMIDE [Concomitant]
     Dosage: UNK
  8. METOPROLOL [Concomitant]
     Dosage: UNK
  9. ATORVASTATIN [Concomitant]
     Dosage: UNK
  10. COVERSYL [Concomitant]
     Dosage: UNK
  11. NITRO PATCH [Concomitant]
     Dosage: UNK
  12. FENTANYL [Concomitant]
     Dosage: UNK
     Route: 062
  13. OXYCOCET [Concomitant]
     Dosage: UNK
  14. LEVETIRACETAM [Concomitant]
     Dosage: UNK
  15. CLOPIDOGREL [Concomitant]
     Dosage: UNK
  16. GABAPENTIN [Concomitant]
     Dosage: UNK
  17. LANSOPRAZOLE [Concomitant]
     Dosage: UNK

REACTIONS (8)
  - Convulsion [Unknown]
  - Cellulitis [Recovered/Resolved]
  - Staphylococcal skin infection [Unknown]
  - Pseudomonas infection [Unknown]
  - Glioblastoma [Unknown]
  - Skin lesion [Unknown]
  - Infection [Unknown]
  - Hypersensitivity [Unknown]
